FAERS Safety Report 17785277 (Version 2)
Quarter: 2020Q2

REPORT INFORMATION
  Report Type: Spontaneous
  Country: DE (occurrence: US)
  Receive Date: 20200514
  Receipt Date: 20200626
  Transmission Date: 20200714
  Serious: Yes (Death, Other)
  Sender: FDA-Public Use
  Company Number: DE-TEVA-2020-DE-1237523

PATIENT

DRUGS (1)
  1. AMIODARONE I.V. [Suspect]
     Active Substance: AMIODARONE
     Indication: TACHYARRHYTHMIA
     Dosage: 10 MG/KG LOAD PLUS 10 MG/KG/DAY DURING THE NEXT 47 HOURS
     Route: 042

REACTIONS (3)
  - Hypotension [Unknown]
  - Death [Fatal]
  - Reaction to excipient [Unknown]
